FAERS Safety Report 23904052 (Version 7)
Quarter: 2025Q2

REPORT INFORMATION
  Report Type: Spontaneous
  Country: US (occurrence: US)
  Receive Date: 20240527
  Receipt Date: 20250401
  Transmission Date: 20250717
  Serious: No
  Sender: BRISTOL MYERS SQUIBB
  Company Number: US-BRISTOL-MYERS SQUIBB COMPANY-2024-083321

PATIENT
  Age: 65 Year
  Sex: Female

DRUGS (1)
  1. REVLIMID [Suspect]
     Active Substance: LENALIDOMIDE
     Indication: Plasma cell myeloma in remission
     Route: 048

REACTIONS (10)
  - Hot flush [Unknown]
  - Hyperhidrosis [Unknown]
  - Nausea [Unknown]
  - Vision blurred [Unknown]
  - Rhinorrhoea [Unknown]
  - Blood triglycerides increased [Unknown]
  - Diarrhoea [Unknown]
  - Tremor [Unknown]
  - Feeling hot [Unknown]
  - Chills [Unknown]

NARRATIVE: CASE EVENT DATE: 20240101
